FAERS Safety Report 7333420-6 (Version None)
Quarter: 2011Q1

REPORT INFORMATION
  Report Type: 
  Country: None (occurrence: None)
  Receive Date: 20110304
  Receipt Date: 20110221
  Transmission Date: 20110831
  Serious: Yes (Other)
  Sender: FDA-Public Use
  Company Number: US-BAYER-2011-016481

PATIENT
  Sex: Male
  Weight: 71 kg

DRUGS (3)
  1. UNCODEABLE ^UNCLASSIFIABLE^ [Concomitant]
     Indication: ASTHMA
  2. CAMPHO-PHENIQUE ANTISEPTIC GEL [Suspect]
     Dosage: UNK UNK, ONCE
     Route: 047
  3. UNCODEABLE ^UNCLASSIFIABLE^ [Concomitant]

REACTIONS (4)
  - VISION BLURRED [None]
  - OCULAR HYPERAEMIA [None]
  - EYE BURNS [None]
  - EYE IRRITATION [None]
